FAERS Safety Report 4542184-0 (Version None)
Quarter: 2004Q4

REPORT INFORMATION
  Report Type: 
  Country: None (occurrence: None)
  Receive Date: 20041227
  Receipt Date: 20041118
  Transmission Date: 20050328
  Serious: Yes (Death, Disabling, Other)
  Sender: FDA-Public Use
  Company Number: 2004240914US

PATIENT
  Age: 74 Year
  Sex: Female
  Weight: 92.0802 kg

DRUGS (6)
  1. CELEBREX [Suspect]
     Indication: ARTHRITIS
     Dosage: 200 MG (200MG 1 IN 1 D ORAL)
     Route: 048
     Dates: start: 20021202, end: 20040801
  2. PREDNISONE [Suspect]
     Indication: POLYNEUROPATHY
  3. ALENDRONATE (ALENDRONATE SODIUM) [Concomitant]
  4. ENALAPRIL MALEATE(ENALAPRIL MALEAET) [Concomitant]
  5. DYAZIDE [Concomitant]
  6. PYRIDOSTIGMINE BROMIDE (PYRIDOSTIGMINE BROMIDE) [Concomitant]

REACTIONS (5)
  - ARTHRITIS [None]
  - DYSPNOEA [None]
  - FATIGUE [None]
  - MYOCARDIAL INFARCTION [None]
  - WEIGHT INCREASED [None]
